FAERS Safety Report 19035725 (Version 1)
Quarter: 2021Q1

REPORT INFORMATION
  Report Type: Report from Study
  Country: BR (occurrence: BR)
  Receive Date: 20210320
  Receipt Date: 20210320
  Transmission Date: 20210420
  Serious: Yes (Other)
  Sender: FDA-Public Use
  Company Number: NVSC2021BR058321

PATIENT
  Age: 90 Year
  Sex: Male

DRUGS (1)
  1. ULTIBRO [Suspect]
     Active Substance: GLYCOPYRRONIUM\INDACATEROL
     Indication: PRODUCT USED FOR UNKNOWN INDICATION
     Dosage: (110/50 MCG)
     Route: 065

REACTIONS (4)
  - Confusional state [Unknown]
  - Chikungunya virus infection [Unknown]
  - Senile dementia [Unknown]
  - Speech disorder [Unknown]

NARRATIVE: CASE EVENT DATE: 202007
